FAERS Safety Report 9515797 (Version 2)
Quarter: 2013Q4

REPORT INFORMATION
  Report Type: Report from Study
  Country: JP (occurrence: JP)
  Receive Date: 20130911
  Receipt Date: 20131011
  Transmission Date: 20140711
  Serious: Yes (Hospitalization)
  Sender: FDA-Public Use
  Company Number: JP-SANOFI-AVENTIS-2013SA089457

PATIENT
  Age: 77 Year
  Sex: Female
  Weight: 49 kg

DRUGS (15)
  1. ELPLAT [Suspect]
     Indication: GASTRIC CANCER
     Route: 041
     Dates: start: 20101214, end: 20130820
  2. GIMERACIL/OTERACIL POTASSIUM/TEGAFUR [Suspect]
     Indication: GASTRIC CANCER
     Route: 048
     Dates: start: 20101214
  3. AMLODIPINE BESILATE [Concomitant]
     Dates: start: 20101214
  4. AMLODIPINE BESILATE [Concomitant]
     Dates: start: 20130528
  5. POLAPREZINC [Concomitant]
     Dates: start: 20110419
  6. GLIMEPIRIDE [Concomitant]
     Dates: start: 20130528
  7. MECOBALAMIN [Concomitant]
     Dates: start: 20111025
  8. PRAVASTATIN [Concomitant]
     Dates: start: 20101215
  9. PRAVASTATIN [Concomitant]
     Dates: start: 20130326
  10. HACHIAZULE [Concomitant]
     Route: 048
     Dates: start: 20110712
  11. DEXALTIN [Concomitant]
     Dosage: OINTMENT CREAM
     Route: 061
     Dates: start: 20110712
  12. UREPEARL [Concomitant]
     Dates: start: 20121016
  13. XYLOCAINE [Concomitant]
     Route: 048
     Dates: start: 20120717
  14. HYALEIN [Concomitant]
     Route: 047
     Dates: start: 20110308
  15. SELTOUCH [Concomitant]
     Dosage: FORM: TAPE (INCLUDING POULTICE)
     Dates: start: 20101214

REACTIONS (1)
  - Cataract [Recovering/Resolving]
